FAERS Safety Report 12259092 (Version 1)
Quarter: 2016Q2

REPORT INFORMATION
  Report Type: Spontaneous
  Country: US (occurrence: US)
  Receive Date: 20160412
  Receipt Date: 20160412
  Transmission Date: 20160815
  Serious: No
  Sender: FDA-Public Use
  Company Number: US-SA-2015SA073385

PATIENT
  Age: 68 Year
  Sex: Female

DRUGS (3)
  1. ALLEGRA ALLERGY [Suspect]
     Active Substance: FEXOFENADINE HYDROCHLORIDE
     Indication: SNEEZING
     Dosage: PRODUCT STARTED USING IN THE SECOND WEEK OF MAY.?NDC NUMBER: 41167-4131-4
     Route: 048
     Dates: start: 20150420, end: 20150430
  2. ZYRTEC [Concomitant]
     Active Substance: CETIRIZINE HYDROCHLORIDE
     Route: 065
  3. ALLEGRA ALLERGY [Suspect]
     Active Substance: FEXOFENADINE HYDROCHLORIDE
     Indication: LACRIMATION INCREASED
     Dosage: PRODUCT STARTED USING IN THE SECOND WEEK OF MAY.?NDC NUMBER: 41167-4131-4
     Route: 048
     Dates: start: 20150420, end: 20150430

REACTIONS (2)
  - Drug ineffective [Unknown]
  - Extra dose administered [Unknown]
